FAERS Safety Report 8708790 (Version 2)
Quarter: 2013Q3

REPORT INFORMATION
  Report Type: Report from Study
  Country: KR (occurrence: KR)
  Receive Date: 20120806
  Receipt Date: 20130807
  Transmission Date: 20140515
  Serious: Yes (Other)
  Sender: FDA-Public Use
  Company Number: KR-ROCHE-1094270

PATIENT
  Sex: 0

DRUGS (8)
  1. BEVACIZUMAB [Suspect]
     Indication: COLORECTAL CANCER METASTATIC
     Dosage: FLUOROURACIL BASED REGIMEN
     Route: 065
  2. BEVACIZUMAB [Suspect]
     Dosage: CAPECITABINE-BASED REGIMEN
     Route: 065
  3. CAPECITABINE [Suspect]
     Indication: COLORECTAL CANCER METASTATIC
     Route: 065
  4. OXALIPLATIN [Suspect]
     Indication: COLORECTAL CANCER METASTATIC
     Dosage: ON DAY 1
     Route: 065
  5. FOLINIC ACID [Suspect]
     Indication: COLORECTAL CANCER METASTATIC
     Dosage: ON DAY 1
     Route: 065
  6. FLUOROURACIL [Suspect]
     Indication: COLORECTAL CANCER METASTATIC
     Route: 040
  7. FLUOROURACIL [Suspect]
     Dosage: ON DAY 1
     Route: 041
  8. IRINOTECAN [Suspect]
     Indication: COLORECTAL CANCER METASTATIC
     Dosage: DOSE: 150/180 MG/M2 ON DAY 1
     Route: 065

REACTIONS (11)
  - Proteinuria [Unknown]
  - Pulmonary embolism [Unknown]
  - Neutropenia [Unknown]
  - Mucosal inflammation [Unknown]
  - Diarrhoea [Unknown]
  - Peripheral sensory neuropathy [Unknown]
  - Palmar-plantar erythrodysaesthesia syndrome [Unknown]
  - Febrile neutropenia [Unknown]
  - Anaemia [Unknown]
  - Vomiting [Unknown]
  - Leukopenia [Unknown]
